FAERS Safety Report 14531402 (Version 5)
Quarter: 2019Q4

REPORT INFORMATION
  Report Type: Spontaneous
  Country: US (occurrence: US)
  Receive Date: 20180214
  Receipt Date: 20191003
  Transmission Date: 20200122
  Serious: Yes (Other)
  Sender: FDA-Public Use
  Company Number: US-PFIZER INC-2018058906

PATIENT
  Age: 38 Year
  Sex: Female

DRUGS (1)
  1. LYRICA [Suspect]
     Active Substance: PREGABALIN
     Dosage: 150 MG, 4X/DAY (SIG: 1 CAPSULE BY MOUTH FOUR TIMES A DAY)/(1 CAPSULE BY MOUTH FOUR X S, A DAY)
     Route: 048

REACTIONS (2)
  - Seizure [Unknown]
  - Musculoskeletal disorder [Unknown]
